FAERS Safety Report 20491077 (Version 1)
Quarter: 2022Q1

REPORT INFORMATION
  Report Type: Spontaneous
  Country: US (occurrence: US)
  Receive Date: 20220218
  Receipt Date: 20220218
  Transmission Date: 20220423
  Serious: No
  Sender: FDA-Public Use
  Company Number: US-SANOFI-00973178

PATIENT
  Age: 69 Year
  Sex: Male

DRUGS (2)
  1. FLUZONE QUADRIVALENT NOS [Suspect]
     Active Substance: INFLUENZA A VIRUS A/CALIFORNIA/7/2009 X-179A (H1N1) ANTIGEN (FORMALDEHYDE INACTIVATED)\INFLUENZA A V
     Indication: Immunisation
     Dosage: .5 ML
     Route: 030
     Dates: start: 20220209
  2. TUBERSOL [Suspect]
     Active Substance: TUBERCULIN PURIFIED PROTEIN DERIVATIVE
     Indication: Tuberculin test
     Dosage: 0.1 ML

REACTIONS (2)
  - Product temperature excursion issue [Unknown]
  - Wrong technique in product usage process [Unknown]

NARRATIVE: CASE EVENT DATE: 20220209
